FAERS Safety Report 15793002 (Version 1)
Quarter: 2019Q1

REPORT INFORMATION
  Report Type: Spontaneous
  Country: DE (occurrence: DE)
  Receive Date: 20190107
  Receipt Date: 20190107
  Transmission Date: 20190417
  Serious: Yes (Death, Other)
  Sender: FDA-Public Use
  Company Number: DE-DRREDDYS-GER/GER/18/0105363

PATIENT
  Age: 78 Year
  Sex: Male

DRUGS (5)
  1. PAROXETINE. [Concomitant]
     Active Substance: PAROXETINE
     Indication: PRODUCT USED FOR UNKNOWN INDICATION
     Dates: start: 20170101
  2. DRONABINOL. [Concomitant]
     Active Substance: DRONABINOL
     Indication: DEMENTIA WITH LEWY BODIES
     Dosage: 2.5 UP TO 15 MG/D^2
     Dates: start: 20160101
  3. FLUPENTIXOL [Concomitant]
     Active Substance: FLUPENTIXOL
     Indication: DEMENTIA WITH LEWY BODIES
     Route: 048
  4. QUETIAPINE. [Suspect]
     Active Substance: QUETIAPINE
     Indication: DEMENTIA WITH LEWY BODIES
     Dosage: AS HIGH AS TOLERATED BY THE PATIENT
     Route: 048
     Dates: start: 20160101
  5. DEXTROMETHORPHAN [Concomitant]
     Active Substance: DEXTROMETHORPHAN
     Indication: DEMENTIA WITH LEWY BODIES
     Dates: start: 20170101

REACTIONS (5)
  - Aggression [Recovering/Resolving]
  - Withdrawal syndrome [Recovering/Resolving]
  - Hangover [Recovering/Resolving]
  - Sleep disorder [Recovering/Resolving]
  - Completed suicide [Fatal]

NARRATIVE: CASE EVENT DATE: 20170101
